FAERS Safety Report 5522309-0 (Version None)
Quarter: 2007Q4

REPORT INFORMATION
  Report Type: 
  Country: None (occurrence: None)
  Receive Date: 20071120
  Receipt Date: 20071113
  Transmission Date: 20080405
  Serious: Yes (Other)
  Sender: FDA-Public Use
  Company Number: ES-ASTRAZENECA-2007AC02220

PATIENT
  Age: 79 Year
  Sex: Male

DRUGS (1)
  1. CASODEX [Suspect]
     Indication: NEOPLASM PROSTATE
     Route: 048
     Dates: start: 20040908

REACTIONS (3)
  - BREAST PAIN [None]
  - GYNAECOMASTIA [None]
  - HYPERPROLACTINAEMIA [None]
